FAERS Safety Report 5426668-9 (Version None)
Quarter: 2007Q3

REPORT INFORMATION
  Report Type: 
  Country: None (occurrence: None)
  Receive Date: 20070731
  Receipt Date: 20070507
  Transmission Date: 20080115
  Serious: No
  Sender: FDA-Public Use
  Company Number: 2006PV013547

PATIENT
  Age: 69 Year
  Sex: Male
  Weight: 88.9 kg

DRUGS (13)
  1. EXENATIDE(EXENATIDE) PEN,DISPOSABLE [Suspect]
     Indication: TYPE 2 DIABETES MELLITUS
     Dosage: 5 UG, 5 UG, 2/D, 5 UG 2/D,5 UG, DAILY (1/D),10 UG, 2/D, SUBCUTANEOUS 10 UG, 2/D 5 UG, 2/D
     Route: 058
     Dates: start: 20051201, end: 20051201
  2. EXENATIDE(EXENATIDE) PEN,DISPOSABLE [Suspect]
     Indication: TYPE 2 DIABETES MELLITUS
     Dosage: 5 UG, 5 UG, 2/D, 5 UG 2/D,5 UG, DAILY (1/D),10 UG, 2/D, SUBCUTANEOUS 10 UG, 2/D 5 UG, 2/D
     Route: 058
     Dates: start: 20060101, end: 20060101
  3. EXENATIDE(EXENATIDE) PEN,DISPOSABLE [Suspect]
     Indication: TYPE 2 DIABETES MELLITUS
     Dosage: 5 UG, 5 UG, 2/D, 5 UG 2/D,5 UG, DAILY (1/D),10 UG, 2/D, SUBCUTANEOUS 10 UG, 2/D 5 UG, 2/D
     Route: 058
     Dates: start: 20060101, end: 20060101
  4. EXENATIDE(EXENATIDE) PEN,DISPOSABLE [Suspect]
     Indication: TYPE 2 DIABETES MELLITUS
     Dosage: 5 UG, 5 UG, 2/D, 5 UG 2/D,5 UG, DAILY (1/D),10 UG, 2/D, SUBCUTANEOUS 10 UG, 2/D 5 UG, 2/D
     Route: 058
     Dates: start: 20060601, end: 20070504
  5. EXENATIDE(EXENATIDE) PEN,DISPOSABLE [Suspect]
     Indication: TYPE 2 DIABETES MELLITUS
     Dosage: 5 UG, 5 UG, 2/D, 5 UG 2/D,5 UG, DAILY (1/D),10 UG, 2/D, SUBCUTANEOUS 10 UG, 2/D 5 UG, 2/D
     Route: 058
     Dates: start: 20051201
  6. EXENATIDE(EXENATIDE) PEN,DISPOSABLE [Suspect]
     Indication: TYPE 2 DIABETES MELLITUS
     Dosage: 5 UG, 5 UG, 2/D, 5 UG 2/D,5 UG, DAILY (1/D),10 UG, 2/D, SUBCUTANEOUS 10 UG, 2/D 5 UG, 2/D
     Route: 058
     Dates: start: 20060101
  7. EXENATIDE(EXENATIDE) PEN,DISPOSABLE [Suspect]
     Indication: TYPE 2 DIABETES MELLITUS
     Dosage: 5 UG, 5 UG, 2/D, 5 UG 2/D,5 UG, DAILY (1/D),10 UG, 2/D, SUBCUTANEOUS 10 UG, 2/D 5 UG, 2/D
     Route: 058
     Dates: start: 20070505
  8. AVANDIA [Concomitant]
  9. METFORMIN HCL [Concomitant]
  10. LISINOPRIL [Concomitant]
  11. EXENATIDE [Concomitant]
  12. EXENATIDE(EXENATIDE) PEN,DISPOSABLE [Suspect]
  13. EXENATIDE(EXENATIDE) PEN,DISPOSABLE [Suspect]

REACTIONS (4)
  - ABDOMINAL DISTENSION [None]
  - NAUSEA [None]
  - WEIGHT DECREASED [None]
  - WEIGHT INCREASED [None]
